FAERS Safety Report 7783087-8 (Version None)
Quarter: 2011Q3

REPORT INFORMATION
  Report Type: 
  Country: None (occurrence: None)
  Receive Date: 20110928
  Receipt Date: 20110919
  Transmission Date: 20111222
  Serious: Yes (Hospitalization)
  Sender: FDA-Public Use
  Company Number: FR-BAXTER-2011BH029647

PATIENT
  Age: 68 Year
  Sex: Male

DRUGS (1)
  1. EXTRANEAL [Suspect]
     Indication: ABDOMINAL CAVITY DRAINAGE
     Route: 033
     Dates: end: 20110911

REACTIONS (1)
  - PERITONEAL DIALYSIS COMPLICATION [None]
